FAERS Safety Report 21678281 (Version 1)
Quarter: 2022Q4

REPORT INFORMATION
  Report Type: Spontaneous
  Country: PL (occurrence: PL)
  Receive Date: 20221203
  Receipt Date: 20221203
  Transmission Date: 20230113
  Serious: Yes (Hospitalization)
  Sender: FDA-Public Use
  Company Number: None

PATIENT
  Age: 68 Year
  Sex: Male
  Weight: 84 kg

DRUGS (3)
  1. CARBOPLATIN [Suspect]
     Active Substance: CARBOPLATIN
     Indication: Lung carcinoma cell type unspecified stage 0
     Dosage: UNK (600 UNKNOWN UNIT)
     Route: 042
     Dates: start: 20210105, end: 20210126
  2. ETOPOSIDE [Concomitant]
     Active Substance: ETOPOSIDE
     Indication: Lung carcinoma cell type unspecified stage 0
     Dosage: 200 MG
     Route: 042
     Dates: start: 20210105, end: 20210107
  3. DEXAMETHASONE [Concomitant]
     Active Substance: DEXAMETHASONE
     Indication: Lung carcinoma cell type unspecified stage 0
     Dosage: 4 MG, BID (2 X 4 MG)
     Route: 042
     Dates: start: 20210105, end: 20210107

REACTIONS (2)
  - Dizziness [Recovered/Resolved]
  - Asthenia [Recovered/Resolved]

NARRATIVE: CASE EVENT DATE: 20210125
